FAERS Safety Report 5414796-3 (Version None)
Quarter: 2007Q3

REPORT INFORMATION
  Report Type: 
  Country: None (occurrence: None)
  Receive Date: 20070813
  Receipt Date: 20070803
  Transmission Date: 20080115
  Serious: Yes (Other)
  Sender: FDA-Public Use
  Company Number: 1-15186065/NED-07163

PATIENT
  Age: 84 Year
  Sex: Male

DRUGS (3)
  1. KETOCONAZOLE [Suspect]
     Dosage: 400MG THREE TIMES DAILY, ORAL
     Route: 048
  2. LOVASTATIN [Suspect]
     Indication: HYPERCHOLESTEROLAEMIA
     Dosage: ORAL
     Route: 048
  3. LOVASTATIN [Concomitant]

REACTIONS (9)
  - ALANINE AMINOTRANSFERASE INCREASED [None]
  - ASPARTATE AMINOTRANSFERASE INCREASED [None]
  - BLOOD CREATINE PHOSPHOKINASE INCREASED [None]
  - EXPOSURE TO COMMUNICABLE DISEASE [None]
  - HEPATIC STEATOSIS [None]
  - HEPATITIS A POSITIVE [None]
  - MUSCULAR WEAKNESS [None]
  - MYOGLOBINURIA [None]
  - URINE COLOUR ABNORMAL [None]
